FAERS Safety Report 9102543 (Version 2)
Quarter: 2013Q1

REPORT INFORMATION
  Report Type: Spontaneous
  Country: US (occurrence: US)
  Receive Date: 20130219
  Receipt Date: 20130308
  Transmission Date: 20140127
  Serious: No
  Sender: FDA-Public Use
  Company Number: US-BAYER-2013-020252

PATIENT
  Age: 40 Year
  Sex: Female
  Weight: 79.82 kg

DRUGS (14)
  1. BETASERON [Suspect]
     Indication: MULTIPLE SCLEROSIS
     Dosage: 0.25 ML, QOD (WEEKS 1-2)
     Route: 058
     Dates: start: 20130114, end: 20130207
  2. BETASERON [Suspect]
     Indication: MULTIPLE SCLEROSIS
     Dosage: 0.5 ML, QOD (WEEKS 3-4)
     Route: 058
  3. BETASERON [Suspect]
     Indication: MULTIPLE SCLEROSIS
     Dosage: 0.75 ML, QOD (WEEKS 5-6)
     Route: 058
  4. BETASERON [Suspect]
     Indication: MULTIPLE SCLEROSIS
     Dosage: 1 ML, EVERY OTHER DAY (FROM WEEK 7)
     Route: 058
     Dates: end: 20130207
  5. NEURONTIN [Concomitant]
     Dosage: 100 MG, UNK
     Route: 048
  6. AMITRIPTYLIN [Concomitant]
     Dosage: 25 MG, UNK
     Route: 048
  7. VITAMIN D [Concomitant]
     Dosage: 400 U, UNK
     Route: 048
  8. OMEGA 3 [Concomitant]
     Route: 048
  9. COQ10 [Concomitant]
     Dosage: 75 MG, UNK
     Route: 048
  10. DIGESTIVE ENZYMES [Concomitant]
     Dosage: UNK
     Route: 048
  11. VALIUM [Concomitant]
     Dosage: 2 MG, UNK
     Route: 048
  12. IBUPROFEN [Concomitant]
     Dosage: 200 MG, UNK
     Route: 048
  13. CALCIUM WITH VITAMIN D [Concomitant]
  14. VITAMIN C [Concomitant]

REACTIONS (10)
  - Acne [Not Recovered/Not Resolved]
  - Pruritus [Not Recovered/Not Resolved]
  - Abdominal distension [Not Recovered/Not Resolved]
  - Constipation [Not Recovered/Not Resolved]
  - Dyspnoea [Not Recovered/Not Resolved]
  - Dermatitis acneiform [Unknown]
  - Dizziness [Unknown]
  - Hypoaesthesia [Unknown]
  - Memory impairment [Unknown]
  - Muscle twitching [Unknown]
